FAERS Safety Report 4278128-9 (Version None)
Quarter: 2004Q1

REPORT INFORMATION
  Report Type: 
  Country: None (occurrence: None)
  Receive Date: 20040123
  Receipt Date: 20030611
  Transmission Date: 20041129
  Serious: Yes (Hospitalization, Disabling, Other)
  Sender: FDA-Public Use
  Company Number: WAES 0306USA01432

PATIENT
  Age: 52 Year
  Sex: Female
  Weight: 83 kg

DRUGS (7)
  1. ALBUTEROL [Concomitant]
     Route: 055
  2. TRICOR [Concomitant]
     Route: 048
  3. IBUPROFEN [Concomitant]
     Indication: ARTHRITIS
  4. IBUPROFEN [Concomitant]
  5. DILANTIN [Concomitant]
     Route: 048
  6. VIOXX [Suspect]
     Indication: OSTEOARTHRITIS
     Route: 048
     Dates: end: 20020630
  7. DETROL [Concomitant]

REACTIONS (19)
  - ACUTE MYOCARDIAL INFARCTION [None]
  - ANGINA PECTORIS [None]
  - ANGINA UNSTABLE [None]
  - BLOOD DISORDER [None]
  - CARDIAC VALVE DISEASE [None]
  - CONVULSION [None]
  - CORONARY ARTERY DISEASE [None]
  - DEPRESSION [None]
  - DIZZINESS [None]
  - DYSPNOEA [None]
  - GASTROOESOPHAGEAL REFLUX DISEASE [None]
  - HAEMORRHAGE [None]
  - HYPERHIDROSIS [None]
  - HYPERTENSION [None]
  - NAUSEA [None]
  - ORTHOPNOEA [None]
  - OSTEOARTHRITIS [None]
  - PALPITATIONS [None]
  - SYNCOPE [None]
